FAERS Safety Report 7970513-4 (Version None)
Quarter: 2011Q4

REPORT INFORMATION
  Report Type: 
  Country: None (occurrence: None)
  Receive Date: 20111212
  Receipt Date: 20111206
  Transmission Date: 20120403
  Serious: Yes (Death, Other)
  Sender: FDA-Public Use
  Company Number: JP-GENZYME-THYM-1002847

PATIENT
  Age: 71 Year
  Sex: Male

DRUGS (1)
  1. THYMOGLOBULIN [Suspect]
     Indication: BONE MARROW CONDITIONING REGIMEN
     Dosage: 2.5 MG/KG, QD
     Route: 042
     Dates: start: 20110421, end: 20110422

REACTIONS (9)
  - RENAL IMPAIRMENT [None]
  - ACUTE RESPIRATORY DISTRESS SYNDROME [None]
  - CYTOMEGALOVIRUS TEST POSITIVE [None]
  - CANDIDIASIS [None]
  - EPSTEIN-BARR VIRUS TEST POSITIVE [None]
  - PNEUMONIA [None]
  - PYREXIA [None]
  - CLOSTRIDIUM DIFFICILE COLITIS [None]
  - EPSTEIN-BARR VIRUS ASSOCIATED LYMPHOPROLIFERATIVE DISORDER [None]
